FAERS Safety Report 26140200 (Version 1)
Quarter: 2025Q4

REPORT INFORMATION
  Report Type: Spontaneous
  Country: EU (occurrence: EU)
  Receive Date: 20251210
  Receipt Date: 20251210
  Transmission Date: 20260117
  Serious: Yes (Other)
  Sender: JOHNSON AND JOHNSON
  Company Number: EU-JNJFOC-20251203426

PATIENT
  Sex: Male

DRUGS (8)
  1. DARATUMUMAB [Suspect]
     Active Substance: DARATUMUMAB
     Indication: Primary amyloidosis
  2. DARATUMUMAB [Suspect]
     Active Substance: DARATUMUMAB
  3. VELCADE [Suspect]
     Active Substance: BORTEZOMIB
     Indication: Primary amyloidosis
     Dates: start: 20250926
  4. VELCADE [Suspect]
     Active Substance: BORTEZOMIB
     Dates: start: 20251030
  5. CYCLOPHOSPHAMIDE [Suspect]
     Active Substance: CYCLOPHOSPHAMIDE
     Indication: Primary amyloidosis
  6. CYCLOPHOSPHAMIDE [Suspect]
     Active Substance: CYCLOPHOSPHAMIDE
  7. DEXAMETHASONE [Suspect]
     Active Substance: DEXAMETHASONE
     Indication: Primary amyloidosis
  8. DEXAMETHASONE [Suspect]
     Active Substance: DEXAMETHASONE

REACTIONS (6)
  - Ventricular dysfunction [Unknown]
  - Cardiac disorder [Unknown]
  - Proteinuria [Unknown]
  - Hepatomegaly [Unknown]
  - Nervous system injury [Unknown]
  - Off label use [Unknown]
